FAERS Safety Report 6238858-6 (Version None)
Quarter: 2009Q2

REPORT INFORMATION
  Report Type: 
  Country: None (occurrence: None)
  Receive Date: 20090622
  Receipt Date: 20090615
  Transmission Date: 20091009
  Serious: Yes (Life-Threatening, Hospitalization, Other)
  Sender: FDA-Public Use
  Company Number: FR-CELGENEUS-056-21880-08111142

PATIENT
  Sex: Female
  Weight: 44 kg

DRUGS (10)
  1. REVLIMID [Suspect]
     Indication: MULTIPLE MYELOMA
     Route: 048
     Dates: start: 20080407
  2. REVLIMID [Suspect]
     Route: 048
     Dates: start: 20081104, end: 20090202
  3. ARANESP [Suspect]
     Route: 058
     Dates: start: 20080428, end: 20081101
  4. ARANESP [Suspect]
     Indication: MULTIPLE MYELOMA
  5. MELPHALAN HYDROCHLORIDE [Suspect]
     Indication: DRUG USE FOR UNKNOWN INDICATION
     Route: 065
  6. DURAGESIC-100 [Concomitant]
     Indication: BONE PAIN
     Route: 065
  7. DEXAMETHASONE [Concomitant]
     Indication: MULTIPLE MYELOMA
     Route: 048
     Dates: start: 20080407, end: 20081101
  8. ZOMETA [Concomitant]
     Indication: MULTIPLE MYELOMA
     Route: 051
     Dates: end: 20080601
  9. VAXIGRIP [Concomitant]
     Route: 058
     Dates: start: 20081001
  10. PREDNISONE [Concomitant]
     Indication: DRUG USE FOR UNKNOWN INDICATION
     Route: 065

REACTIONS (3)
  - INFECTION [None]
  - MYELODYSPLASTIC SYNDROME [None]
  - NEUTROPENIA [None]
